FAERS Safety Report 12195280 (Version 1)
Quarter: 2016Q1

REPORT INFORMATION
  Report Type: Report from Study
  Country: US (occurrence: US)
  Receive Date: 20160321
  Receipt Date: 20160321
  Transmission Date: 20160526
  Serious: Yes (Death, Hospitalization, Other)
  Sender: FDA-Public Use
  Company Number: US-JNJFOC-20160300517

PATIENT
  Sex: Male
  Weight: 63 kg

DRUGS (2)
  1. IMBRUVICA [Suspect]
     Active Substance: IBRUTINIB
     Indication: CHRONIC LYMPHOCYTIC LEUKAEMIA
     Route: 048
     Dates: start: 20160127
  2. MERREM [Concomitant]
     Active Substance: MEROPENEM

REACTIONS (2)
  - Disease progression [Fatal]
  - Anal fistula [Unknown]

NARRATIVE: CASE EVENT DATE: 2016
